FAERS Safety Report 24664926 (Version 2)
Quarter: 2024Q4

REPORT INFORMATION
  Report Type: Spontaneous
  Country: KE (occurrence: KE)
  Receive Date: 20241126
  Receipt Date: 20241129
  Transmission Date: 20250114
  Serious: Yes (Death)
  Sender: ROCHE
  Company Number: KE-ROCHE-10000122256

PATIENT
  Age: 76 Year

DRUGS (1)
  1. MABTHERA [Suspect]
     Active Substance: RITUXIMAB
     Indication: Product used for unknown indication
     Route: 065

REACTIONS (2)
  - Death [Fatal]
  - Nervous system disorder [Unknown]

NARRATIVE: CASE EVENT DATE: 20240901
